FAERS Safety Report 9705860 (Version 1)
Quarter: 2013Q4

REPORT INFORMATION
  Report Type: Spontaneous
  Country: US (occurrence: US)
  Receive Date: 20131122
  Receipt Date: 20131122
  Transmission Date: 20140711
  Serious: Yes (Hospitalization)
  Sender: FDA-Public Use
  Company Number: US-B.I. PHARMACEUTICALS,INC./RIDGEFIELD-2013-BI-38189BP

PATIENT
  Sex: Male

DRUGS (11)
  1. PRADAXA [Suspect]
     Indication: ATRIAL FIBRILLATION
     Dosage: 300 MG
     Route: 048
     Dates: start: 2010, end: 2011
  2. PRADAXA [Suspect]
     Dosage: 150 MG
     Route: 048
     Dates: start: 2011
  3. LANTUS [Concomitant]
     Indication: DIABETES MELLITUS
     Dosage: 60 U
     Route: 058
  4. NOVALOG [Concomitant]
     Indication: DIABETES MELLITUS
     Dosage: FORMULATION: SUBCUTANEOUS
     Route: 058
  5. BUMEX [Concomitant]
     Dosage: 2 MG
     Route: 048
  6. ZOLOFT [Concomitant]
     Indication: ANXIETY
     Dosage: 50 MG
     Route: 048
  7. ROCALTROL [Concomitant]
     Dosage: 0.5 MCG
     Route: 048
  8. PROTONIX [Concomitant]
     Dosage: 40 MG
     Route: 048
  9. LIPITOR [Concomitant]
     Indication: BLOOD CHOLESTEROL INCREASED
     Dosage: 20 MG
     Route: 048
  10. SYNTHROID [Concomitant]
     Indication: HYPOTHYROIDISM
     Dosage: 100 MG
     Route: 048
  11. NORVASC [Concomitant]
     Dosage: 5 MG
     Route: 048

REACTIONS (1)
  - Rectal haemorrhage [Recovered/Resolved]
